FAERS Safety Report 24783714 (Version 1)
Quarter: 2024Q4

REPORT INFORMATION
  Report Type: Spontaneous
  Country: SE (occurrence: SE)
  Receive Date: 20241227
  Receipt Date: 20241227
  Transmission Date: 20250115
  Serious: Yes (Other)
  Sender: PFIZER
  Company Number: None

PATIENT
  Age: 27 Year
  Sex: Female
  Weight: 70 kg

DRUGS (1)
  1. CLINDAMYCIN PHOSPHATE [Suspect]
     Active Substance: CLINDAMYCIN PHOSPHATE
     Indication: Bacterial vaginosis
     Dosage: 100 MG, DAILY
     Route: 067
     Dates: start: 20241111, end: 20241112

REACTIONS (3)
  - Pyelonephritis [Recovered/Resolved]
  - Urinary retention [Not Recovered/Not Resolved]
  - Micturition urgency [Recovered/Resolved with Sequelae]

NARRATIVE: CASE EVENT DATE: 20241101
